FAERS Safety Report 17180121 (Version 1)
Quarter: 2019Q4

REPORT INFORMATION
  Report Type: Spontaneous
  Country: SE (occurrence: SE)
  Receive Date: 20191219
  Receipt Date: 20191219
  Transmission Date: 20200122
  Serious: Yes (Hospitalization)
  Sender: FDA-Public Use
  Company Number: SE-ASTRAZENECA-2019SF79792

PATIENT
  Age: 30 Year
  Sex: Male

DRUGS (7)
  1. FOLACIN (CALCIUM PHOSPHATE\FOLIC ACID) [Suspect]
     Active Substance: CALCIUM PHOSPHATE\FOLIC ACID
     Dosage: 3.0MG UNKNOWN
     Route: 048
     Dates: start: 20190318, end: 20190318
  2. LORATADINE. [Suspect]
     Active Substance: LORATADINE
     Dosage: 30.0MG UNKNOWN
     Route: 048
     Dates: start: 20190318, end: 20190318
  3. OMEPRAZOLE. [Suspect]
     Active Substance: OMEPRAZOLE
     Dosage: 120.0MG UNKNOWN
     Route: 048
     Dates: start: 20190318, end: 20190318
  4. CITALOPRAM [Suspect]
     Active Substance: CITALOPRAM HYDROBROMIDE
     Dosage: 60.0MG UNKNOWN
     Route: 048
     Dates: start: 20190318, end: 20190318
  5. PROPAVAN [Suspect]
     Active Substance: PROPIOMAZINE
     Dosage: 150.0MG UNKNOWN
     Route: 048
     Dates: start: 20190318, end: 20190318
  6. POSTAFEN (MECLOZINE HYDROCHLORIDE) [Suspect]
     Active Substance: MECLIZINE MONOHYDROCHLORIDE
     Dosage: 250.0MG UNKNOWN
     Route: 048
     Dates: start: 20190318, end: 20190318
  7. OLANZAPINE. [Suspect]
     Active Substance: OLANZAPINE
     Dosage: 3X7,5 MG AND 3X5 MG
     Route: 048
     Dates: start: 20190318, end: 20190318

REACTIONS (2)
  - Intentional self-injury [Unknown]
  - Intentional overdose [Unknown]

NARRATIVE: CASE EVENT DATE: 20190318
